FAERS Safety Report 6343773-3 (Version None)
Quarter: 2009Q3

REPORT INFORMATION
  Report Type: 
  Country: None (occurrence: None)
  Receive Date: 20090908
  Receipt Date: 20090828
  Transmission Date: 20100115
  Serious: Yes (Other)
  Sender: FDA-Public Use
  Company Number: B0589094A

PATIENT
  Age: 77 Year
  Sex: Male
  Weight: 85.7 kg

DRUGS (10)
  1. ZOVIRAX [Suspect]
     Indication: HERPES ZOSTER
     Dosage: 800MG FIVE TIMES PER DAY
     Route: 048
     Dates: start: 20090813
  2. IBUPROFEN [Concomitant]
  3. DIALYSIS [Concomitant]
  4. CALCICHEW D3 FORTE [Concomitant]
     Indication: OSTEOPOROSIS
  5. LORATADINE [Concomitant]
     Dosage: 10MG PER DAY
  6. MELOXICAM [Concomitant]
     Indication: ARTHRITIS
     Dosage: 7.5MG PER DAY
     Route: 065
  7. SIMVASTATIN [Concomitant]
     Indication: HYPERLIPIDAEMIA
     Dosage: 40MG PER DAY
     Route: 065
  8. ALFACALCIDOL [Concomitant]
     Indication: DRUG USE FOR UNKNOWN INDICATION
     Dosage: 250NG PER DAY
     Route: 065
  9. ASPIRIN [Concomitant]
     Dosage: 300MG PER DAY
     Route: 065
  10. RABEPRAZOLE SODIUM [Concomitant]
     Dosage: 20MG PER DAY
     Route: 065

REACTIONS (3)
  - ACCIDENTAL OVERDOSE [None]
  - FALL [None]
  - HALLUCINATION, VISUAL [None]
